FAERS Safety Report 9775950 (Version 1)
Quarter: 2013Q4

REPORT INFORMATION
  Report Type: Report from Study
  Country: US (occurrence: US)
  Receive Date: 20131220
  Receipt Date: 20131220
  Transmission Date: 20140711
  Serious: Yes (Other)
  Sender: FDA-Public Use
  Company Number: US-PURDUE-USA-2013-0109640

PATIENT
  Age: 65 Year
  Sex: Female

DRUGS (3)
  1. OXY CR TAB [Suspect]
     Indication: FIBROMYALGIA
  2. OXY CR TAB [Suspect]
     Indication: INTERVERTEBRAL DISC DEGENERATION
     Dosage: UNK
     Route: 048
     Dates: start: 201308
  3. OXY CR TAB [Suspect]
     Indication: ARTHRITIS
     Dosage: 40 MG, BID
     Route: 048
     Dates: start: 20131106

REACTIONS (4)
  - Visual acuity reduced [Unknown]
  - Cataract [Unknown]
  - Pain [Unknown]
  - Insomnia [Unknown]
